FAERS Safety Report 18152732 (Version 1)
Quarter: 2020Q3

REPORT INFORMATION
  Report Type: Spontaneous
  Country: CA (occurrence: CA)
  Receive Date: 20200814
  Receipt Date: 20200814
  Transmission Date: 20201103
  Serious: Yes (Life-Threatening, Hospitalization)
  Sender: FDA-Public Use
  Company Number: CA-ANIPHARMA-2020-CA-001563

PATIENT
  Age: 75 Year
  Sex: Female

DRUGS (3)
  1. CANDESARTAN CILEXETIL. [Suspect]
     Active Substance: CANDESARTAN CILEXETIL
     Indication: PRODUCT USED FOR UNKNOWN INDICATION
     Route: 048
  2. VITAMIN D [Concomitant]
     Active Substance: VITAMIN D NOS
     Route: 065
  3. L?GLUTAMINE [Concomitant]
     Route: 065

REACTIONS (6)
  - Flushing [Recovered/Resolved]
  - Anaphylactic reaction [Not Recovered/Not Resolved]
  - Peripheral swelling [Recovered/Resolved]
  - Wheezing [Recovered/Resolved]
  - Oxygen saturation decreased [Recovered/Resolved]
  - Dyspnoea [Recovered/Resolved]
